FAERS Safety Report 9181168 (Version 1)
Quarter: 2013Q1

REPORT INFORMATION
  Report Type: Spontaneous
  Country: US (occurrence: US)
  Receive Date: 20130322
  Receipt Date: 20130322
  Transmission Date: 20140127
  Serious: No
  Sender: FDA-Public Use
  Company Number: US-PFIZER INC-2013091754

PATIENT
  Sex: 0

DRUGS (4)
  1. EFFEXOR [Suspect]
     Indication: DEPRESSION
     Dosage: UNK
  2. EFFEXOR [Suspect]
     Indication: SUICIDE ATTEMPT
  3. EFFEXOR XR [Suspect]
     Indication: DEPRESSION
     Dosage: UNK
  4. EFFEXOR XR [Suspect]
     Indication: SUICIDE ATTEMPT

REACTIONS (3)
  - Malaise [Unknown]
  - Nausea [Unknown]
  - Confusional state [Unknown]
